FAERS Safety Report 9138932 (Version 1)
Quarter: 2013Q1

REPORT INFORMATION
  Report Type: Spontaneous
  Country: GB (occurrence: GB)
  Receive Date: 20130305
  Receipt Date: 20130305
  Transmission Date: 20140127
  Serious: Yes (Other)
  Sender: FDA-Public Use
  Company Number: GB-ELI_LILLY_AND_COMPANY-GB201302007962

PATIENT
  Age: 51 Year
  Sex: Female

DRUGS (3)
  1. FLUOXETINE HYDROCHLORIDE [Suspect]
     Indication: ANXIETY
     Dosage: 20 MG, BID
     Route: 048
     Dates: start: 20121008, end: 20121105
  2. FLUOXETINE HYDROCHLORIDE [Suspect]
     Dosage: 20 MG, QD
     Route: 048
     Dates: start: 20121105
  3. ASPIRIN [Concomitant]
     Dosage: 75 MG, UNKNOWN

REACTIONS (1)
  - Scotoma [Recovered/Resolved]
